FAERS Safety Report 17338203 (Version 2)
Quarter: 2020Q1

REPORT INFORMATION
  Report Type: Spontaneous
  Country: FR (occurrence: FR)
  Receive Date: 20200129
  Receipt Date: 20200212
  Transmission Date: 20200409
  Serious: Yes (Life-Threatening, Hospitalization, Other)
  Sender: FDA-Public Use
  Company Number: FR-AUROBINDO-AUR-APL-2020-004013

PATIENT
  Age: 73 Year
  Sex: Female

DRUGS (5)
  1. IRBESARTAN+ HYDROCHLOROTHIAZIDE [Suspect]
     Active Substance: HYDROCHLOROTHIAZIDE\IRBESARTAN
     Indication: CLEAR CELL RENAL CELL CARCINOMA
     Dosage: UNK, FOR MORE THAN 1 YEAR
     Route: 065
  2. AMLODIPINE [Suspect]
     Active Substance: AMLODIPINE BESYLATE
     Indication: PRODUCT USED FOR UNKNOWN INDICATION
     Dosage: UNK
     Route: 065
  3. PAZOPANIB [Suspect]
     Active Substance: PAZOPANIB
     Indication: RENAL CANCER
     Dosage: 600 MILLIGRAM, DAILY
     Route: 065
  4. PAZOPANIB [Suspect]
     Active Substance: PAZOPANIB
     Indication: CLEAR CELL RENAL CELL CARCINOMA
     Dosage: 400 MILLIGRAM, DAILY
     Route: 065
  5. PAZOPANIB [Suspect]
     Active Substance: PAZOPANIB
     Dosage: 200 MILLIGRAM, DAILY
     Route: 065

REACTIONS (11)
  - Inappropriate antidiuretic hormone secretion [Recovered/Resolved]
  - Headache [Recovered/Resolved]
  - Nausea [Recovered/Resolved]
  - Hyponatraemia [Recovered/Resolved]
  - Blood creatinine increased [Recovered/Resolved]
  - Acute kidney injury [Recovered/Resolved]
  - Vasogenic cerebral oedema [Recovered/Resolved]
  - Urine osmolarity increased [Unknown]
  - Psychomotor retardation [Recovered/Resolved]
  - Hypertension [Recovered/Resolved]
  - Posterior reversible encephalopathy syndrome [Recovered/Resolved]
